FAERS Safety Report 5447033-4 (Version None)
Quarter: 2007Q3

REPORT INFORMATION
  Report Type: 
  Country: None (occurrence: None)
  Receive Date: 20070808
  Receipt Date: 20061222
  Transmission Date: 20080115
  Serious: Yes (Hospitalization)
  Sender: FDA-Public Use
  Company Number: 14486021/MED06234

PATIENT
  Sex: Male

DRUGS (3)
  1. BACTRIM [Suspect]
     Indication: GLIOBLASTOMA MULTIFORME
     Dosage: ORAL
     Route: 048
     Dates: start: 20060901
  2. TEMODAR [Concomitant]
  3. DEPAKOTE [Concomitant]

REACTIONS (3)
  - MUCOSAL INFLAMMATION [None]
  - PANCYTOPENIA [None]
  - STOMATITIS [None]
